FAERS Safety Report 5776872-5 (Version None)
Quarter: 2008Q2

REPORT INFORMATION
  Report Type: 
  Country: None (occurrence: None)
  Receive Date: 20080616
  Receipt Date: 20080521
  Transmission Date: 20081010
  Serious: Yes (Hospitalization, Other)
  Sender: FDA-Public Use
  Company Number: 2008-00005

PATIENT
  Sex: Female

DRUGS (3)
  1. NEUTROGENA ADVANCED SOLUTION POLISH ACNE CLEANSER [Suspect]
     Indication: ACNE
     Dosage: TOPICAL 1X;
     Route: 061
     Dates: start: 20060712
  2. NEUTROGENA ADVANCED SOLUTION SUN SHIELD DY LOTION [Suspect]
     Indication: PROPHYLAXIS AGAINST SOLAR RADIATION
     Dosage: TOPICAL 1X
     Route: 061
     Dates: start: 20060712
  3. NEUTROGENA ADVANCED SOLUTION OVERNIGHT ACNE LOTION [Suspect]
     Indication: ACNE
     Dosage: TOPICAL 1X
     Route: 061
     Dates: start: 20060712

REACTIONS (8)
  - BURNING SENSATION [None]
  - DRY SKIN [None]
  - EYE SWELLING [None]
  - MALAISE [None]
  - PRURITUS [None]
  - SCAR [None]
  - SKIN EXFOLIATION [None]
  - SWELLING FACE [None]
